FAERS Safety Report 8972188 (Version 1)
Quarter: 2012Q4

REPORT INFORMATION
  Report Type: 
  Country: DE (occurrence: DE)
  Receive Date: 20121218
  Receipt Date: 20121218
  Transmission Date: 20130627
  Serious: Yes (Life-Threatening, Hospitalization, Other)
  Sender: FDA-Public Use
  Company Number: DE-ABBOTT-12P-062-1023235-00

PATIENT
  Age: 28 None
  Sex: Female

DRUGS (3)
  1. HUMIRA [Suspect]
     Indication: CROHN^S DISEASE
     Route: 058
     Dates: start: 20120307
  2. PREGABALIN [Concomitant]
     Indication: EPILEPSY
  3. LAMOTRIGIN [Concomitant]
     Indication: EPILEPSY

REACTIONS (6)
  - Intestinal obstruction [Recovering/Resolving]
  - Fistula [Recovering/Resolving]
  - Jaundice [Recovering/Resolving]
  - Hypoglycaemia [Recovering/Resolving]
  - Abscess [Recovering/Resolving]
  - Abdominal pain [Recovering/Resolving]
